FAERS Safety Report 4623901-8 (Version None)
Quarter: 2005Q1

REPORT INFORMATION
  Report Type: 
  Country: None (occurrence: None)
  Receive Date: 20050331
  Receipt Date: 20050304
  Transmission Date: 20050727
  Serious: Yes (Other)
  Sender: FDA-Public Use
  Company Number: BE-BOEHRINGER INGELHEIM PHARMACEUTICALS, INC.-2005-DE-00945BY

PATIENT
  Sex: Female

DRUGS (6)
  1. KINZALMONO [Suspect]
     Route: 048
     Dates: start: 20040210
  2. AMLOR [Concomitant]
  3. ALDACTAZINE [Concomitant]
  4. TRITACE [Concomitant]
  5. LIPITOR [Concomitant]
  6. PANTOPRAZOLE SODIUM [Concomitant]

REACTIONS (1)
  - RENAL FAILURE [None]
